FAERS Safety Report 25778117 (Version 1)
Quarter: 2025Q3

REPORT INFORMATION
  Report Type: Spontaneous
  Country: GB (occurrence: GB)
  Receive Date: 20250909
  Receipt Date: 20250909
  Transmission Date: 20251020
  Serious: Yes (Other)
  Sender: TEVA
  Company Number: GB-MHRA-TPP24339403C32444745YC1757064475058

PATIENT
  Age: 54 Year
  Sex: Female
  Weight: 70 kg

DRUGS (3)
  1. NAPROXEN [Suspect]
     Active Substance: NAPROXEN
     Indication: Ill-defined disorder
     Route: 065
     Dates: start: 20250905
  2. CETIRIZINE [Concomitant]
     Active Substance: CETIRIZINE HYDROCHLORIDE
     Indication: Ill-defined disorder
     Dates: start: 20250905, end: 20250905
  3. FUSIDIC ACID [Concomitant]
     Active Substance: FUSIDIC ACID
     Indication: Ill-defined disorder
     Dates: start: 20250905

REACTIONS (1)
  - Angioedema [Recovering/Resolving]

NARRATIVE: CASE EVENT DATE: 20250905
